FAERS Safety Report 10583361 (Version 1)
Quarter: 2014Q4

REPORT INFORMATION
  Report Type: Spontaneous
  Country: FR (occurrence: None)
  Receive Date: 20141112
  Receipt Date: 20141112
  Transmission Date: 20150529
  Serious: Yes (Life-Threatening)
  Sender: FDA-Public Use
  Company Number: FK201404984

PATIENT
  Age: 60 Year
  Sex: Male

DRUGS (4)
  1. SUFENTANIL  MERCK (SUFENTANIL CITRATE) (SUFENTANIL CITRATE) [Suspect]
     Active Substance: SUFENTANIL
     Indication: INDUCTION OF ANAESTHESIA
     Dates: start: 20140905, end: 20140905
  2. SOMATOSTATINE (SOMATOSTATIN ACETATE) [Concomitant]
  3. PROPOFOL. [Suspect]
     Active Substance: PROPOFOL
     Indication: INDUCTION OF ANAESTHESIA
     Dates: start: 20140905, end: 20140905
  4. CELOCURINE [Suspect]
     Active Substance: SUCCINYLCHOLINE CHLORIDE
     Indication: INDUCTION OF ANAESTHESIA
     Dates: start: 20140905, end: 20140905

REACTIONS (1)
  - Anaphylactic shock [None]

NARRATIVE: CASE EVENT DATE: 20140905
